FAERS Safety Report 23696595 (Version 2)
Quarter: 2024Q2

REPORT INFORMATION
  Report Type: Other
  Country: CA (occurrence: None)
  Receive Date: 20240402
  Receipt Date: 20240411
  Transmission Date: 20240715
  Serious: Yes (Hospitalization)
  Sender: FDA-Public Use
  Company Number: CA-ROCHE-3531948

PATIENT
  Sex: Female

DRUGS (2)
  1. OCREVUS [Suspect]
     Active Substance: OCRELIZUMAB
     Indication: Relapsing-remitting multiple sclerosis
     Dosage: 300 MG AT DAY 0 AND 14, THEN 600 MG EVERY 6 MONTHS
     Route: 042
     Dates: start: 20210721
  2. QUETIAPINE [Concomitant]
     Active Substance: QUETIAPINE

REACTIONS (6)
  - Anaphylactic reaction [Unknown]
  - Gastrointestinal disorder [Unknown]
  - Illness [Unknown]
  - Pelvic congestion [Unknown]
  - Anxiety [Unknown]
  - Dyspnoea [Unknown]
